FAERS Safety Report 13680749 (Version 2)
Quarter: 2017Q2

REPORT INFORMATION
  Report Type: Spontaneous
  Country: PL (occurrence: PL)
  Receive Date: 20170623
  Receipt Date: 20170628
  Transmission Date: 20170830
  Serious: Yes (Other)
  Sender: FDA-Public Use
  Company Number: PL-ROCHE-1953138

PATIENT
  Sex: Female

DRUGS (12)
  1. HERCEPTIN [Suspect]
     Active Substance: TRASTUZUMAB
     Indication: METASTASES TO LIVER
  2. DOXORUBICIN [Suspect]
     Active Substance: DOXORUBICIN
     Indication: HER-2 POSITIVE BREAST CANCER
     Route: 065
     Dates: start: 201507
  3. DOXORUBICIN [Suspect]
     Active Substance: DOXORUBICIN
     Indication: METASTASES TO LIVER
  4. LAPATINIB [Suspect]
     Active Substance: LAPATINIB
     Indication: METASTASES TO LIVER
  5. XELODA [Suspect]
     Active Substance: CAPECITABINE
     Indication: HER-2 POSITIVE BREAST CANCER
     Route: 065
  6. HERCEPTIN [Suspect]
     Active Substance: TRASTUZUMAB
     Indication: HER-2 POSITIVE BREAST CANCER
     Route: 065
  7. CYCLOPHOSPHAMIDE. [Suspect]
     Active Substance: CYCLOPHOSPHAMIDE
     Indication: HER-2 POSITIVE BREAST CANCER
  8. TAXOL [Suspect]
     Active Substance: PACLITAXEL
     Indication: HER-2 POSITIVE BREAST CANCER
     Route: 065
  9. XELODA [Suspect]
     Active Substance: CAPECITABINE
     Indication: METASTASES TO LIVER
  10. LAPATINIB [Suspect]
     Active Substance: LAPATINIB
     Indication: HER-2 POSITIVE BREAST CANCER
     Route: 065
  11. CYCLOPHOSPHAMIDE. [Suspect]
     Active Substance: CYCLOPHOSPHAMIDE
     Indication: METASTASES TO LIVER
     Route: 065
     Dates: start: 201507
  12. TAXOL [Suspect]
     Active Substance: PACLITAXEL
     Indication: METASTASES TO LIVER

REACTIONS (3)
  - Metastases to central nervous system [Unknown]
  - Drug effect decreased [Unknown]
  - Drug ineffective [Unknown]
